FAERS Safety Report 16132770 (Version 1)
Quarter: 2019Q1

REPORT INFORMATION
  Report Type: Spontaneous
  Country: US (occurrence: US)
  Receive Date: 20190226
  Receipt Date: 20190226
  Transmission Date: 20190418
  Serious: Yes (Death)
  Sender: FDA-Public Use
  Company Number: None

PATIENT
  Age: 63 Year
  Sex: Female
  Weight: 70.3 kg

DRUGS (1)
  1. OPDIVO [Suspect]
     Active Substance: NIVOLUMAB
     Indication: METASTATIC RENAL CELL CARCINOMA
     Dosage: ?          OTHER FREQUENCY:Q14 DAYS ;?
     Route: 042
     Dates: start: 20180424, end: 20180621

REACTIONS (2)
  - Clear cell renal cell carcinoma [None]
  - Metastases to bone [None]

NARRATIVE: CASE EVENT DATE: 20180621
